FAERS Safety Report 12214977 (Version 3)
Quarter: 2016Q2

REPORT INFORMATION
  Report Type: Spontaneous
  Country: DE (occurrence: DE)
  Receive Date: 20160328
  Receipt Date: 20160520
  Transmission Date: 20160815
  Serious: Yes (Death, Hospitalization, Other)
  Sender: FDA-Public Use
  Company Number: DE-AMGEN-DEUSP2016035727

PATIENT
  Age: 74 Year
  Sex: Female
  Weight: 64 kg

DRUGS (18)
  1. XGEVA [Suspect]
     Active Substance: DENOSUMAB
     Indication: BREAST CANCER METASTATIC
     Dosage: 120 MG, Q4WK
     Route: 058
     Dates: start: 20130903
  2. RAMIPRIL. [Concomitant]
     Active Substance: RAMIPRIL
  3. PACLITAXEL. [Concomitant]
     Active Substance: PACLITAXEL
     Dosage: UNK
     Dates: start: 20140807, end: 20150617
  4. DUROGESIC [Concomitant]
     Active Substance: FENTANYL
     Dosage: UNK
     Dates: start: 20110721
  5. EXEMESTAN [Concomitant]
     Active Substance: EXEMESTANE
     Dosage: UNK
     Dates: start: 20130903, end: 20140730
  6. LETROZOLE. [Concomitant]
     Active Substance: LETROZOLE
     Indication: MALIGNANT NEOPLASM PROGRESSION
     Dosage: UNK
     Dates: start: 200901, end: 201212
  7. ANASTROZOLE. [Concomitant]
     Active Substance: ANASTROZOLE
     Indication: MALIGNANT NEOPLASM PROGRESSION
     Dosage: UNK
     Dates: start: 200901, end: 201212
  8. BONDRONAT                          /01304701/ [Concomitant]
     Active Substance: IBANDRONIC ACID
     Indication: MALIGNANT NEOPLASM PROGRESSION
     Dosage: 50 G/D, UNK
     Dates: start: 200901, end: 2012
  9. AFINITOR [Suspect]
     Active Substance: EVEROLIMUS
     Indication: BREAST CANCER METASTATIC
     Dosage: 10 MG, QD
     Route: 065
     Dates: start: 20130903, end: 20140730
  10. PANTOZOL [Concomitant]
     Active Substance: PANTOPRAZOLE SODIUM
     Dosage: UNK
     Dates: start: 201307
  11. FASLODEX [Concomitant]
     Active Substance: FULVESTRANT
     Indication: MALIGNANT NEOPLASM PROGRESSION
     Dosage: 500 MG, UNK
     Dates: start: 201212, end: 201307
  12. VOLTAREN [Concomitant]
     Active Substance: DICLOFENAC SODIUM
     Dosage: UNK
     Dates: start: 201307
  13. BEVACIZUMAB [Concomitant]
     Active Substance: BEVACIZUMAB
     Dosage: UNK
     Dates: start: 20140807, end: 20150617
  14. METFORMIN [Concomitant]
     Active Substance: METFORMIN HYDROCHLORIDE
  15. CAELYX [Concomitant]
     Active Substance: DOXORUBICIN HYDROCHLORIDE
     Dosage: UNK
     Dates: start: 20151022, end: 20151022
  16. METOBETA [Concomitant]
  17. FOLICOMBIN [Concomitant]
     Dosage: UNK
     Dates: start: 201307
  18. AVASTIN                            /00848101/ [Concomitant]
     Active Substance: SIMVASTATIN
     Dosage: UNK
     Dates: start: 20140807, end: 20150617

REACTIONS (8)
  - Hypertension [Unknown]
  - Cardiac failure [Unknown]
  - Type 1 diabetes mellitus [Unknown]
  - Arrhythmia [Unknown]
  - Osteonecrosis of jaw [Unknown]
  - Metastases to bone [Fatal]
  - Metastases to spine [Unknown]
  - Malignant neoplasm progression [Fatal]

NARRATIVE: CASE EVENT DATE: 20131127
